FAERS Safety Report 16071475 (Version 2)
Quarter: 2019Q2

REPORT INFORMATION
  Report Type: Spontaneous
  Country: US (occurrence: US)
  Receive Date: 20190314
  Receipt Date: 20190531
  Transmission Date: 20190711
  Serious: No
  Sender: FDA-Public Use
  Company Number: US-PFIZER INC-2019005036

PATIENT
  Age: 47 Year
  Sex: Female

DRUGS (4)
  1. ROSUVASTATIN CALCIUM. [Concomitant]
     Active Substance: ROSUVASTATIN CALCIUM
     Dosage: 10 MG, UNK
  2. TAXOTERE [Suspect]
     Active Substance: DOCETAXEL
     Indication: BREAST CANCER
     Dosage: UNK, EVERY 3 WEEKS, 6 CYCLES
     Dates: start: 20130130, end: 20130516
  3. DOCETAXEL. [Suspect]
     Active Substance: DOCETAXEL
     Indication: BREAST CANCER
     Dosage: UNK, EVERY 3 WEEKS, 6 CYCLES
     Dates: start: 20130130, end: 20130516
  4. BENAZEPRIL [Concomitant]
     Active Substance: BENAZEPRIL HYDROCHLORIDE
     Dosage: 20 MG, UNK

REACTIONS (5)
  - Hair colour changes [Unknown]
  - Madarosis [Unknown]
  - Alopecia [Unknown]
  - Hair disorder [Unknown]
  - Hair texture abnormal [Unknown]

NARRATIVE: CASE EVENT DATE: 20130201
